FAERS Safety Report 16904319 (Version 2)
Quarter: 2019Q4

REPORT INFORMATION
  Report Type: Spontaneous
  Country: ES (occurrence: ES)
  Receive Date: 20191010
  Receipt Date: 20191023
  Transmission Date: 20200122
  Serious: Yes (Other)
  Sender: FDA-Public Use
  Company Number: ES-TEVA-2019-ES-1120839

PATIENT
  Age: 39 Year
  Sex: Female

DRUGS (1)
  1. WILZIN CAPSULE, 50 MG [Suspect]
     Active Substance: ZINC ACETATE
     Indication: STEATOHEPATITIS
     Dosage: 150 MILLIGRAM DAILY;
     Route: 065
     Dates: start: 201506, end: 201801

REACTIONS (7)
  - Pancytopenia [Recovering/Resolving]
  - Neuropathy peripheral [Recovering/Resolving]
  - Urine copper decreased [Recovering/Resolving]
  - Blood copper decreased [Recovering/Resolving]
  - Off label use [Unknown]
  - Vision blurred [Recovering/Resolving]
  - Paraesthesia [Recovering/Resolving]
